FAERS Safety Report 5781227-3 (Version None)
Quarter: 2008Q2

REPORT INFORMATION
  Report Type: 
  Country: None (occurrence: None)
  Receive Date: 20080618
  Receipt Date: 20080605
  Transmission Date: 20081010
  Serious: Yes (Hospitalization)
  Sender: FDA-Public Use
  Company Number: 2008AL004919

PATIENT
  Age: 67 Year
  Sex: Female
  Weight: 68.0396 kg

DRUGS (5)
  1. DIGOXIN [Suspect]
     Indication: ARRHYTHMIA
     Dosage: DAILY PO
     Route: 048
  2. POTASSIUM CHLORIDE [Concomitant]
  3. LASIX [Concomitant]
  4. DILTIAZEM HCL [Concomitant]
  5. COUMADIN [Concomitant]

REACTIONS (7)
  - CARDIAC DISORDER [None]
  - DIZZINESS [None]
  - HYPOTENSION [None]
  - NAUSEA [None]
  - RENAL FAILURE [None]
  - UNEVALUABLE EVENT [None]
  - VOMITING [None]
